FAERS Safety Report 5380113-0 (Version None)
Quarter: 2007Q3

REPORT INFORMATION
  Report Type: 
  Country: None (occurrence: None)
  Receive Date: 20070706
  Receipt Date: 20070425
  Transmission Date: 20080115
  Serious: No
  Sender: FDA-Public Use
  Company Number: A0648718A

PATIENT
  Age: 59 Year
  Sex: Female

DRUGS (6)
  1. TYKERB [Suspect]
     Indication: BREAST CANCER
     Dosage: 1250MG PER DAY
     Route: 048
     Dates: start: 20070412
  2. LEVAQUIN [Concomitant]
  3. TETRACYCLINE [Concomitant]
  4. FLUCONAZOLE [Concomitant]
  5. ANTACID TAB [Concomitant]
  6. XELODA [Concomitant]

REACTIONS (3)
  - DYSPHONIA [None]
  - INFECTION [None]
  - NAUSEA [None]
